FAERS Safety Report 8335281-5 (Version None)
Quarter: 2012Q2

REPORT INFORMATION
  Report Type: 
  Country: None (occurrence: None)
  Receive Date: 20120503
  Receipt Date: 20120423
  Transmission Date: 20120825
  Serious: Yes (Hospitalization)
  Sender: FDA-Public Use
  Company Number: BE-ABBOTT-12P-013-0928218-05

PATIENT
  Sex: Female

DRUGS (15)
  1. OMEPRAZOLE [Concomitant]
     Indication: ABDOMINAL PAIN UPPER
     Dates: start: 20080501, end: 20090101
  2. EFFEXOR [Concomitant]
     Indication: INSOMNIA
     Dates: start: 20090703, end: 20090708
  3. MOTILIUM [Concomitant]
     Indication: DIARRHOEA
     Dates: start: 20090301
  4. PANTOPRAZOLE [Concomitant]
     Indication: ABDOMINAL PAIN UPPER
     Dates: start: 20090401, end: 20090901
  5. ACETAMINOPHEN [Concomitant]
     Indication: PAIN
     Dates: start: 20090801
  6. IMMUNOSUPPRESSANTS [Concomitant]
     Indication: PRODUCT USED FOR UNKNOWN INDICATION
  7. MEDROL [Concomitant]
     Indication: CROHN'S DISEASE
     Dates: start: 20090707
  8. ACETAMINOPHEN [Concomitant]
     Indication: ABDOMINAL PAIN
     Dates: start: 20090705, end: 20090705
  9. REMICADE [Concomitant]
     Indication: CROHN'S DISEASE
  10. PANTOPRAZOLE [Concomitant]
     Dates: start: 20091201, end: 20120207
  11. FELDENE [Concomitant]
     Indication: ARTHRALGIA
     Dates: start: 20090101, end: 20090101
  12. HUMIRA [Suspect]
     Indication: CROHN'S DISEASE
     Route: 058
     Dates: end: 20090701
  13. REMICADE [Concomitant]
     Dates: start: 20110817
  14. PANTOPRAZOLE [Concomitant]
     Dates: start: 20120208, end: 20120218
  15. EFFEXOR [Concomitant]
     Dates: start: 20090801

REACTIONS (3)
  - INTESTINAL OBSTRUCTION [None]
  - INTESTINAL ANASTOMOSIS [None]
  - INTESTINAL FISTULA [None]
